FAERS Safety Report 17889657 (Version 1)
Quarter: 2020Q2

REPORT INFORMATION
  Report Type: Spontaneous
  Country: US (occurrence: US)
  Receive Date: 20200612
  Receipt Date: 20200612
  Transmission Date: 20200714
  Serious: Yes (Hospitalization)
  Sender: FDA-Public Use
  Company Number: US-MYLANLABS-2020M1055257

PATIENT
  Age: 40 Year
  Sex: Male

DRUGS (3)
  1. LORAZEPAM. [Suspect]
     Active Substance: LORAZEPAM
     Dosage: 2 MILLIGRAM, QHSUBSEQUENTLY, THE DOSE WAS REDUCED..
     Route: 042
  2. DEXMEDETOMIDINE. [Suspect]
     Active Substance: DEXMEDETOMIDINE
     Indication: HYPERTENSIVE EMERGENCY
     Dosage: 0.2-0.7 MICROG/KG/H
     Route: 065
  3. LORAZEPAM. [Suspect]
     Active Substance: LORAZEPAM
     Indication: HYPERTENSIVE EMERGENCY
     Dosage: SEVERAL REPEAT BOLUS DOSES: 0.5MG-2MG
     Route: 040

REACTIONS (2)
  - Off label use [Unknown]
  - Withdrawal hypertension [Recovering/Resolving]
